FAERS Safety Report 7637585 (Version 7)
Quarter: 2012Q4

REPORT INFORMATION
  Report Type: 
  Country: US (occurrence: US)
  Receive Date: 20101022
  Receipt Date: 20121031
  Transmission Date: 20130627
  Serious: Yes (Life-Threatening, Disabling, Other)
  Sender: FDA-Public Use
  Company Number: US-NAPPMUNDI-USA-2010-0049143

PATIENT
  Age: 23 Year
  Sex: Male

DRUGS (1)
  1. OXYCONTIN TABLETS [Suspect]
     Indication: DRUG ABUSE
     Dosage: UNK

REACTIONS (12)
  - Accidental overdose [Unknown]
  - Drug dependence [Unknown]
  - Drug abuse [Unknown]
  - Coma [Recovered/Resolved]
  - Brain injury [Unknown]
  - Paralysis [Unknown]
  - Abasia [Unknown]
  - Aphasia [Unknown]
  - Myocardial infarction [Unknown]
  - Cerebrovascular accident [Unknown]
  - Quadriplegia [Unknown]
  - Respiratory arrest [Recovered/Resolved]
